FAERS Safety Report 25177624 (Version 2)
Quarter: 2025Q2

REPORT INFORMATION
  Report Type: Spontaneous
  Country: NL (occurrence: NL)
  Receive Date: 20250409
  Receipt Date: 20250503
  Transmission Date: 20250716
  Serious: Yes (Hospitalization, Other)
  Sender: AUROBINDO
  Company Number: NL-JAZZ PHARMACEUTICALS-2025-NL-005891

PATIENT
  Age: 26 Year
  Sex: Male

DRUGS (1)
  1. PHENYTOIN [Suspect]
     Active Substance: PHENYTOIN
     Indication: Product used for unknown indication
     Route: 065

REACTIONS (2)
  - Seizure [Not Recovered/Not Resolved]
  - Treatment noncompliance [Unknown]
